FAERS Safety Report 11794933 (Version 1)
Quarter: 2015Q4

REPORT INFORMATION
  Report Type: Spontaneous
  Country: PT (occurrence: PT)
  Receive Date: 20151202
  Receipt Date: 20151202
  Transmission Date: 20160305
  Serious: Yes (Death, Life-Threatening, Hospitalization)
  Sender: FDA-Public Use
  Company Number: PHHY2015PT156953

PATIENT
  Age: 66 Year
  Sex: Female
  Weight: 75 kg

DRUGS (5)
  1. MORPHINE SULFATE/NALTREXONE HYDROCHLORIDE [Concomitant]
     Active Substance: MORPHINE SULFATE\NALTREXONE HYDROCHLORIDE
     Indication: PAIN
     Route: 048
     Dates: end: 20150923
  2. FULVESTRANT [Concomitant]
     Active Substance: FULVESTRANT
     Indication: METASTASES TO BONE
     Route: 042
     Dates: start: 20150917
  3. AFINITOR [Suspect]
     Active Substance: EVEROLIMUS
     Dosage: 10 MG, QD
     Route: 048
     Dates: start: 20150918, end: 20150926
  4. ZOLEDRONIC ACID [Concomitant]
     Active Substance: ZOLEDRONIC ACID
     Indication: PRODUCT USED FOR UNKNOWN INDICATION
     Route: 065
  5. AFINITOR [Suspect]
     Active Substance: EVEROLIMUS
     Indication: BREAST CANCER METASTATIC
     Dosage: 5 MG, QD
     Route: 048
     Dates: start: 20150903, end: 20150917

REACTIONS (6)
  - Death [Fatal]
  - Renal impairment [Fatal]
  - Anuria [Fatal]
  - Acute kidney injury [Fatal]
  - Posterior reversible encephalopathy syndrome [Fatal]
  - Oliguria [Fatal]

NARRATIVE: CASE EVENT DATE: 2015
